FAERS Safety Report 24526545 (Version 1)
Quarter: 2024Q4

REPORT INFORMATION
  Report Type: Spontaneous
  Country: RU (occurrence: RU)
  Receive Date: 20241021
  Receipt Date: 20241021
  Transmission Date: 20250114
  Serious: No
  Sender: ROCHE
  Company Number: RU-ROCHE-3473449

PATIENT
  Age: 41 Year
  Sex: Female

DRUGS (4)
  1. VEMURAFENIB [Suspect]
     Active Substance: VEMURAFENIB
     Indication: Malignant melanoma stage II
     Route: 065
     Dates: start: 201909
  2. VEMURAFENIB [Suspect]
     Active Substance: VEMURAFENIB
     Route: 065
  3. COBIMETINIB [Suspect]
     Active Substance: COBIMETINIB
     Indication: Malignant melanoma stage II
     Route: 065
  4. COBIMETINIB [Suspect]
     Active Substance: COBIMETINIB
     Dosage: DOSE REDUCTION:  COBIMETINIB 40 MG
     Route: 065

REACTIONS (3)
  - Erythema [Unknown]
  - Rash [Unknown]
  - Ovarian cyst [Unknown]

NARRATIVE: CASE EVENT DATE: 20200203
